FAERS Safety Report 5977017-9 (Version None)
Quarter: 2008Q4

REPORT INFORMATION
  Report Type: 
  Country: None (occurrence: None)
  Receive Date: 20081126
  Receipt Date: 20081117
  Transmission Date: 20090506
  Serious: Yes (Other)
  Sender: FDA-Public Use
  Company Number: US024921

PATIENT
  Age: 19 Year
  Sex: Male

DRUGS (3)
  1. PROVIGIL [Suspect]
     Indication: ATTENTION DEFICIT/HYPERACTIVITY DISORDER
     Dosage: 200 MG QAM ORAL
     Route: 048
     Dates: start: 20060101, end: 20081018
  2. CLONAZEPAM [Concomitant]
  3. CALCIUM CALCIUM [Concomitant]

REACTIONS (1)
  - GRAND MAL CONVULSION [None]
